FAERS Safety Report 6299802-9 (Version None)
Quarter: 2009Q3

REPORT INFORMATION
  Report Type: 
  Country: None (occurrence: None)
  Receive Date: 20090806
  Receipt Date: 20090720
  Transmission Date: 20100115
  Serious: Yes (Death, Hospitalization)
  Sender: FDA-Public Use
  Company Number: KE-BRISTOL-MYERS SQUIBB COMPANY-14728604

PATIENT
  Age: 56 Year
  Sex: Male

DRUGS (4)
  1. EFAVIRENZ [Suspect]
     Indication: HIV INFECTION
     Route: 048
     Dates: start: 20090609, end: 20090617
  2. TRUVADA [Suspect]
     Indication: HIV INFECTION
     Route: 048
     Dates: start: 20090609, end: 20090617
  3. RIFAMATE [Concomitant]
     Dates: start: 20090526
  4. SEPTRIN [Concomitant]
     Dates: start: 20090330

REACTIONS (1)
  - PERITONITIS [None]
